FAERS Safety Report 16116897 (Version 1)
Quarter: 2019Q1

REPORT INFORMATION
  Report Type: Spontaneous
  Country: US (occurrence: US)
  Receive Date: 20190221
  Receipt Date: 20190221
  Transmission Date: 20190418
  Serious: No
  Sender: FDA-Public Use
  Company Number: None

PATIENT
  Age: 57 Year
  Sex: Female

DRUGS (1)
  1. GLATIRAMER PFS INJ (12/BOX) [Suspect]
     Active Substance: GLATIRAMER
     Route: 058
     Dates: start: 201902

REACTIONS (6)
  - Nausea [None]
  - Back pain [None]
  - Chills [None]
  - Multiple sclerosis relapse [None]
  - Vision blurred [None]
  - Fatigue [None]

NARRATIVE: CASE EVENT DATE: 20190221
